FAERS Safety Report 15969429 (Version 6)
Quarter: 2019Q2

REPORT INFORMATION
  Report Type: Report from Study
  Country: US (occurrence: US)
  Receive Date: 20190215
  Receipt Date: 20190514
  Transmission Date: 20190711
  Serious: Yes (Hospitalization, Congenital Anomaly, Other)
  Sender: FDA-Public Use
  Company Number: US-ACTELION-A-NJ2018-173512

PATIENT
  Age: 55 Year
  Sex: Female
  Weight: 71.2 kg

DRUGS (2)
  1. OPSUMIT [Suspect]
     Active Substance: MACITENTAN
     Indication: PULMONARY ARTERIAL HYPERTENSION
     Dosage: 10 MG, QD
     Route: 048
     Dates: start: 20180426
  2. ADCIRCA [Suspect]
     Active Substance: TADALAFIL
     Indication: PRODUCT USED FOR UNKNOWN INDICATION
     Route: 065

REACTIONS (47)
  - Pulmonary arterial hypertension [Recovered/Resolved with Sequelae]
  - Electrocardiogram QT prolonged [Recovered/Resolved]
  - Pain [Unknown]
  - Mobility decreased [Recovered/Resolved with Sequelae]
  - Malaise [Unknown]
  - Fluid overload [Unknown]
  - Dyspnoea [Recovering/Resolving]
  - Chest pain [Recovered/Resolved]
  - Vomiting [Recovered/Resolved]
  - Acute kidney injury [Recovered/Resolved]
  - Weight increased [Recovered/Resolved with Sequelae]
  - Respiratory failure [Recovered/Resolved]
  - Gait disturbance [Unknown]
  - Dysuria [Recovered/Resolved]
  - Wound [Not Recovered/Not Resolved]
  - Skin ulcer [Not Recovered/Not Resolved]
  - Oedema [Unknown]
  - Swelling [Not Recovered/Not Resolved]
  - Tenderness [Not Recovered/Not Resolved]
  - Blood creatinine increased [Recovered/Resolved]
  - Oedema peripheral [Unknown]
  - Pollakiuria [Recovered/Resolved with Sequelae]
  - Hypovolaemia [Not Recovered/Not Resolved]
  - Ascites [Recovered/Resolved with Sequelae]
  - Hyperhidrosis [Recovered/Resolved]
  - Peripheral swelling [Unknown]
  - Abdominal distension [Recovered/Resolved with Sequelae]
  - Abdominal pain [Recovered/Resolved]
  - Neuropathy peripheral [Not Recovered/Not Resolved]
  - Haemorrhage [Not Recovered/Not Resolved]
  - Cardiac failure congestive [Unknown]
  - Abdominal discomfort [Recovered/Resolved]
  - Chronic left ventricular failure [Recovered/Resolved with Sequelae]
  - Syncope [Recovered/Resolved]
  - Hyponatraemia [Recovered/Resolved]
  - Hypocalcaemia [Recovered/Resolved]
  - Pain in extremity [Unknown]
  - Dysstasia [Unknown]
  - Asthenia [Unknown]
  - Hypokalaemia [Recovered/Resolved]
  - Pulmonary hypertension [Recovered/Resolved with Sequelae]
  - Cystitis [Recovered/Resolved]
  - Micturition urgency [Recovered/Resolved]
  - Pruritus [Not Recovered/Not Resolved]
  - Blood bilirubin increased [Unknown]
  - Condition aggravated [Unknown]
  - Skin discolouration [Not Recovered/Not Resolved]

NARRATIVE: CASE EVENT DATE: 20180606
